FAERS Safety Report 22118872 (Version 1)
Quarter: 2023Q1

REPORT INFORMATION
  Report Type: Report from Study
  Country: FR (occurrence: FR)
  Receive Date: 20230321
  Receipt Date: 20230321
  Transmission Date: 20230418
  Serious: No
  Sender: FDA-Public Use
  Company Number: FR-GBT-020522

PATIENT
  Age: 56 Year
  Sex: Male
  Weight: 61 kg

DRUGS (4)
  1. VOXELOTOR [Suspect]
     Active Substance: VOXELOTOR
     Indication: Haemolytic anaemia
     Route: 048
     Dates: start: 20221212
  2. RAMIPRIL [Concomitant]
     Active Substance: RAMIPRIL
     Indication: C3 glomerulopathy
     Dates: start: 2012
  3. EXJADE [Concomitant]
     Active Substance: DEFERASIROX
     Dosage: FOR POST-TRANFUSION HEPATIC OVERLOAD
  4. VOXELOTOR [Suspect]
     Active Substance: VOXELOTOR
     Indication: Product used for unknown indication

REACTIONS (3)
  - Asthenia [Unknown]
  - Intentional product misuse [Unknown]
  - Off label use [Unknown]

NARRATIVE: CASE EVENT DATE: 20221212
